FAERS Safety Report 18042187 (Version 6)
Quarter: 2020Q4

REPORT INFORMATION
  Report Type: Other
  Country: CN (occurrence: CN)
  Receive Date: 20200720
  Receipt Date: 20201130
  Transmission Date: 20210113
  Serious: Yes (Other)
  Sender: FDA-Public Use
  Company Number: CN-ROCHE-2348563

PATIENT
  Age: 61 Year
  Sex: Male
  Weight: 80 kg

DRUGS (4)
  1. AVASTIN [Suspect]
     Active Substance: BEVACIZUMAB
     Indication: COLORECTAL CANCER
     Route: 041
     Dates: start: 20170920
  2. AVASTIN [Suspect]
     Active Substance: BEVACIZUMAB
     Route: 041
     Dates: start: 20180619, end: 20200512
  3. AVASTIN [Suspect]
     Active Substance: BEVACIZUMAB
     Route: 041
     Dates: start: 20200720, end: 20200819
  4. AVASTIN [Suspect]
     Active Substance: BEVACIZUMAB
     Route: 041

REACTIONS (8)
  - Pruritus [Unknown]
  - Proteinuria [Unknown]
  - Proctectomy [Unknown]
  - Surgery [Unknown]
  - Dermatitis [Unknown]
  - Protein urine present [Unknown]
  - Anastomotic complication [Not Recovered/Not Resolved]
  - Anal abscess [Recovering/Resolving]

NARRATIVE: CASE EVENT DATE: 20191105
